FAERS Safety Report 7476490-7 (Version None)
Quarter: 2011Q2

REPORT INFORMATION
  Report Type: 
  Country: None (occurrence: None)
  Receive Date: 20110510
  Receipt Date: 20110510
  Transmission Date: 20111010
  Serious: No
  Sender: FDA-Public Use
  Company Number: None

PATIENT
  Sex: Female
  Weight: 98 kg

DRUGS (4)
  1. DACARBAZINE [Suspect]
     Dosage: 1511.25 MG
  2. BLEOMYCIN SULFATE [Suspect]
     Dosage: 40.3 UNIT
  3. DOXORUBICIN HCL [Suspect]
     Dosage: 100.75 MG
  4. VINBLASTINE SULFATE [Suspect]
     Dosage: 6.1 MG

REACTIONS (1)
  - NEUROPATHY PERIPHERAL [None]
